FAERS Safety Report 6371700-1 (Version None)
Quarter: 2009Q3

REPORT INFORMATION
  Report Type: 
  Country: None (occurrence: None)
  Receive Date: 20090923
  Receipt Date: 20081212
  Transmission Date: 20100115
  Serious: Yes (Hospitalization)
  Sender: FDA-Public Use
  Company Number: US-ASTRAZENECA-2008UW08926

PATIENT
  Age: 484 Month
  Sex: Female
  Weight: 149.7 kg

DRUGS (9)
  1. SEROQUEL [Suspect]
     Indication: BIPOLAR DISORDER
     Dosage: 50-100MG
     Route: 048
     Dates: start: 20060919, end: 20061201
  2. SEROQUEL [Suspect]
     Indication: DEPRESSION
     Dosage: 50-100MG
     Route: 048
     Dates: start: 20060919, end: 20061201
  3. SEROQUEL [Suspect]
     Dosage: 100-200MG
     Route: 048
     Dates: start: 20070101
  4. SEROQUEL [Suspect]
     Dosage: 100-200MG
     Route: 048
     Dates: start: 20070101
  5. AMITRIPTYLINE [Concomitant]
     Dosage: 50-150MG
     Dates: start: 20060701
  6. LITHIUM [Concomitant]
     Dates: start: 20061101
  7. LEXAPRO [Concomitant]
     Dosage: 10-20MG
     Dates: start: 20060701
  8. ABILIFY [Concomitant]
  9. BUPROPION HCL [Concomitant]
     Dates: start: 20080701

REACTIONS (6)
  - BLOOD CHOLESTEROL INCREASED [None]
  - CHEST PAIN [None]
  - DIABETES MELLITUS [None]
  - DYSPEPSIA [None]
  - GASTRIC ULCER [None]
  - INFLAMMATION [None]
